FAERS Safety Report 8911896 (Version 2)
Quarter: 2012Q4

REPORT INFORMATION
  Report Type: 
  Country: US (occurrence: US)
  Receive Date: 20121116
  Receipt Date: 20121130
  Transmission Date: 20130627
  Serious: Yes (Hospitalization, Other)
  Sender: FDA-Public Use
  Company Number: US-GENZYME-CAMP-1002563

PATIENT
  Age: 74 Year
  Sex: Female

DRUGS (2)
  1. CAMPATH [Suspect]
     Indication: CHRONIC LYMPHOCYTIC LEUKAEMIA
     Dosage: 30 mg, 3x/w until week 8
     Route: 058
     Dates: start: 20120720, end: 20120824
  2. CAMPATH [Suspect]
     Dosage: 10 mg, 3x/w, on week 8 and was discontinued after week 11
     Route: 058
     Dates: start: 20120904, end: 20121010

REACTIONS (3)
  - Aplasia [Not Recovered/Not Resolved]
  - Pseudomonal sepsis [Unknown]
  - Pneumonia fungal [Unknown]
